FAERS Safety Report 15568292 (Version 3)
Quarter: 2019Q1

REPORT INFORMATION
  Report Type: Report from Study
  Country: BG (occurrence: BG)
  Receive Date: 20181031
  Receipt Date: 20190123
  Transmission Date: 20190417
  Serious: Yes (Hospitalization)
  Sender: FDA-Public Use
  Company Number: BG-ROCHE-2207268

PATIENT
  Age: 41 Year
  Sex: Male
  Weight: 85 kg

DRUGS (9)
  1. OBINUTUZUMAB. [Suspect]
     Active Substance: OBINUTUZUMAB
     Indication: B-CELL LYMPHOMA REFRACTORY
     Dosage: STARTED AT 9:50 AND STOPPED AT 14:05?CYCLE 1 DAY 1 (C1D1)
     Route: 042
     Dates: start: 20180727, end: 20180727
  2. OBINUTUZUMAB. [Suspect]
     Active Substance: OBINUTUZUMAB
     Route: 042
  3. MILURIT [Concomitant]
     Active Substance: ALLOPURINOL
     Indication: PROPHYLAXIS
     Route: 048
     Dates: start: 20180727
  4. BGB-3111 (BTK INHIBITOR) [Suspect]
     Active Substance: ZANUBRUTINIB
     Route: 048
     Dates: start: 20180827, end: 20180924
  5. BGB-3111 (BTK INHIBITOR) [Suspect]
     Active Substance: ZANUBRUTINIB
     Dosage: DATE OF LAST DOSE PRIOR TO SAE: 24/OCT/2018.?INTERRUPTED ON 26/OCT/2018
     Route: 048
     Dates: start: 20180925, end: 20181026
  6. OBINUTUZUMAB. [Suspect]
     Active Substance: OBINUTUZUMAB
     Dosage: STARTED AT 12:30 AND STOPPED AT 15:45?C2D1
     Route: 042
     Dates: start: 20180827, end: 20180827
  7. BGB-3111 (BTK INHIBITOR) [Suspect]
     Active Substance: ZANUBRUTINIB
     Dosage: RESTARTED
     Route: 048
     Dates: start: 20181105
  8. OBINUTUZUMAB. [Suspect]
     Active Substance: OBINUTUZUMAB
     Dosage: STARTED AT 11:30 AND STOPPED AT 14:45?C3D1
     Route: 042
     Dates: start: 20180925, end: 20180925
  9. BGB-3111 (BTK INHIBITOR) [Suspect]
     Active Substance: ZANUBRUTINIB
     Indication: B-CELL LYMPHOMA REFRACTORY
     Route: 048
     Dates: start: 20180727, end: 20180826

REACTIONS (1)
  - Skin infection [Recovered/Resolved]

NARRATIVE: CASE EVENT DATE: 20181025
